FAERS Safety Report 9788217 (Version 1)
Quarter: 2013Q4

REPORT INFORMATION
  Report Type: Spontaneous
  Country: US (occurrence: None)
  Receive Date: 20131227
  Receipt Date: 20131227
  Transmission Date: 20140711
  Serious: Yes (Hospitalization)
  Sender: FDA-Public Use
  Company Number: None

PATIENT
  Age: 62 Year
  Sex: Male
  Weight: 79.5 kg

DRUGS (15)
  1. COUMADIN [Suspect]
     Indication: ATRIAL FIBRILLATION
     Dosage: CHRONIC
     Route: 048
  2. PREDNISONE [Suspect]
     Route: 048
  3. AXITINIB [Suspect]
  4. MVI [Concomitant]
  5. CHOLECALCIFEROL [Concomitant]
  6. VITAMIN B6 [Concomitant]
  7. CA+D [Concomitant]
  8. TAMSULOSIN [Concomitant]
  9. LASIX [Concomitant]
  10. MEGACE [Concomitant]
  11. DIGITEK [Concomitant]
  12. PROTONIX [Concomitant]
  13. FERROUS SULFATE [Concomitant]
  14. METOPROLOL [Concomitant]
  15. REMERON [Concomitant]

REACTIONS (4)
  - Gastrointestinal haemorrhage [None]
  - Haemorrhagic anaemia [None]
  - Coagulopathy [None]
  - International normalised ratio increased [None]
